FAERS Safety Report 7741286-5 (Version None)
Quarter: 2011Q3

REPORT INFORMATION
  Report Type: 
  Country: None (occurrence: None)
  Receive Date: 20110909
  Receipt Date: 20110829
  Transmission Date: 20111222
  Serious: Yes (Hospitalization)
  Sender: FDA-Public Use
  Company Number: US-ELI_LILLY_AND_COMPANY-US201105002613

PATIENT
  Sex: Female
  Weight: 65.306 kg

DRUGS (2)
  1. HUMATROPE [Suspect]
     Indication: HYPOPITUITARISM
     Dosage: 0.8 MG, QD
     Route: 058
     Dates: start: 20090401
  2. PREDNISONE [Concomitant]
     Dosage: UNK, UNKNOWN
     Route: 065

REACTIONS (11)
  - DUST INHALATION PNEUMOPATHY [None]
  - URINARY TRACT INFECTION [None]
  - WEIGHT FLUCTUATION [None]
  - JOINT ABSCESS [None]
  - ROTATOR CUFF SYNDROME [None]
  - EOSINOPHILIC PNEUMONIA ACUTE [None]
  - BLADDER CATHETERISATION [None]
  - MONARTHRITIS [None]
  - PNEUMONIA [None]
  - JOINT INJURY [None]
  - EOSINOPHILIC PNEUMONIA CHRONIC [None]
